FAERS Safety Report 23294026 (Version 4)
Quarter: 2025Q2

REPORT INFORMATION
  Report Type: Spontaneous
  Country: JP (occurrence: JP)
  Receive Date: 20231213
  Receipt Date: 20250417
  Transmission Date: 20250716
  Serious: Yes (Hospitalization)
  Sender: EISAI
  Company Number: JP-Eisai-202311141_LEN-EC_P_1

PATIENT
  Age: 54 Year
  Sex: Female

DRUGS (7)
  1. LENVATINIB [Suspect]
     Active Substance: LENVATINIB
     Indication: Endometrial cancer
  2. LENVATINIB [Suspect]
     Active Substance: LENVATINIB
  3. LENVATINIB [Suspect]
     Active Substance: LENVATINIB
  4. PEMBROLIZUMAB [Suspect]
     Active Substance: PEMBROLIZUMAB
     Indication: Endometrial cancer
  5. PEMBROLIZUMAB [Suspect]
     Active Substance: PEMBROLIZUMAB
  6. PEMBROLIZUMAB [Suspect]
     Active Substance: PEMBROLIZUMAB
     Dosage: DOSE AND FREQUENCY UNKNOWN
  7. DEXAMETHASONE [Concomitant]
     Active Substance: DEXAMETHASONE
     Indication: Abdominal distension

REACTIONS (5)
  - Encephalitis autoimmune [Recovered/Resolved]
  - Hyperthyroidism [Unknown]
  - Hypothyroidism [Recovered/Resolved]
  - Hypertension [Unknown]
  - Hepatic function abnormal [Recovering/Resolving]

NARRATIVE: CASE EVENT DATE: 20231201
